FAERS Safety Report 9310415 (Version 1)
Quarter: 2013Q2

REPORT INFORMATION
  Report Type: Spontaneous
  Country: US (occurrence: US)
  Receive Date: 20130527
  Receipt Date: 20130527
  Transmission Date: 20140414
  Serious: No
  Sender: FDA-Public Use
  Company Number: US-PFIZER INC-2013160811

PATIENT
  Age: 50 Year
  Sex: Male
  Weight: 83.9 kg

DRUGS (5)
  1. LYRICA [Suspect]
     Dosage: 25 MG, 2X/DAY
     Dates: start: 201203
  2. LYRICA [Interacting]
     Dosage: 75 MG, 2X/DAY
     Dates: start: 2013
  3. LYRICA [Interacting]
     Dosage: 100 MG, 2X/DAY
     Dates: start: 2013
  4. LYRICA [Interacting]
     Dosage: 75 MG, 2X/DAY
     Dates: start: 2013
  5. FLUOXETINE HCL [Interacting]
     Indication: ANXIETY
     Dosage: 20 MG, 1X/DAY
     Dates: start: 2013

REACTIONS (8)
  - Insomnia [Unknown]
  - Anxiety [Unknown]
  - Somnolence [Unknown]
  - Fatigue [Unknown]
  - Feeling abnormal [Unknown]
  - Panic attack [Unknown]
  - Drug interaction [Unknown]
  - Medication error [Unknown]
